FAERS Safety Report 5560634-8 (Version None)
Quarter: 2007Q4

REPORT INFORMATION
  Report Type: 
  Country: None (occurrence: None)
  Receive Date: 20071215
  Receipt Date: 20071113
  Transmission Date: 20080405
  Serious: No
  Sender: FDA-Public Use
  Company Number: US-ABBOTT-07P-163-0425409-00

PATIENT
  Sex: Female
  Weight: 90.8 kg

DRUGS (3)
  1. HUMIRA [Suspect]
     Indication: PSORIATIC ARTHROPATHY
     Route: 058
     Dates: start: 20070701
  2. NAPROXEN [Concomitant]
     Indication: DRUG USE FOR UNKNOWN INDICATION
     Route: 048
  3. TIMOLOL GTTS [Concomitant]
     Indication: GLAUCOMA
     Dosage: EYE DROPS
     Route: 047

REACTIONS (4)
  - RASH PAPULAR [None]
  - RASH PRURITIC [None]
  - SCAB [None]
  - SCAR [None]
